FAERS Safety Report 6402774-7 (Version None)
Quarter: 2009Q4

REPORT INFORMATION
  Report Type: 
  Country: None (occurrence: None)
  Receive Date: 20091016
  Receipt Date: 20070315
  Transmission Date: 20100525
  Serious: Yes (Disabling)
  Sender: FDA-Public Use
  Company Number: US-ASTRAZENECA-2006UW10699

PATIENT
  Sex: Male
  Weight: 159.5 kg

DRUGS (10)
  1. SEROQUEL [Suspect]
     Indication: SCHIZOAFFECTIVE DISORDER
     Dosage: 25-800 MG
     Route: 048
     Dates: start: 20001006, end: 20060110
  2. SEROQUEL [Suspect]
     Indication: INSOMNIA
     Dosage: 25-800 MG
     Route: 048
     Dates: start: 20001006, end: 20060110
  3. SEROQUEL [Suspect]
     Indication: ANXIETY
     Dosage: 25-800 MG
     Route: 048
     Dates: start: 20001006, end: 20060110
  4. DEPAKOTE [Concomitant]
     Indication: MANIA
     Dosage: 100-500 MG
     Dates: start: 19990127
  5. DEPAKOTE [Concomitant]
     Indication: DEPRESSION
     Dosage: 100-500 MG
     Dates: start: 19990127
  6. LITHIUM CARBONATE [Concomitant]
     Indication: MANIA
     Dosage: 300-900 MG
     Dates: start: 19990129
  7. LITHIUM CARBONATE [Concomitant]
     Indication: DEPRESSION
     Dosage: 300-900 MG
     Dates: start: 19990129
  8. OXYCONTIN [Concomitant]
     Indication: ARTHRALGIA
     Dates: start: 20010413
  9. NEURONTIN [Concomitant]
     Dates: start: 20010512
  10. CELEBREX [Concomitant]
     Dates: start: 20010512

REACTIONS (1)
  - ILL-DEFINED DISORDER [None]
